FAERS Safety Report 24217337 (Version 1)
Quarter: 2024Q3

REPORT INFORMATION
  Report Type: Spontaneous
  Country: US (occurrence: None)
  Receive Date: 20240815
  Receipt Date: 20240815
  Transmission Date: 20241016
  Serious: Yes (unspecified)
  Sender: Public
  Company Number: None

PATIENT
  Age: 21 Year
  Sex: Male

DRUGS (1)
  1. STELARA [Suspect]
     Active Substance: USTEKINUMAB
     Dosage: OTHER FREQUENCY : EVERY 8 WEEKS;?
     Route: 058

REACTIONS (7)
  - Arthralgia [None]
  - Arthralgia [None]
  - Joint lock [None]
  - Movement disorder [None]
  - Weight bearing difficulty [None]
  - Knee deformity [None]
  - Pain [None]

NARRATIVE: CASE EVENT DATE: 20240810
